FAERS Safety Report 8654848 (Version 2)
Quarter: 2012Q4

REPORT INFORMATION
  Report Type: Report from Study
  Country: DE (occurrence: DE)
  Receive Date: 20120709
  Receipt Date: 20120925
  Transmission Date: 20130627
  Serious: Yes (Hospitalization)
  Sender: FDA-Public Use
  Company Number: DE-GLAXOSMITHKLINE-B0793635A

PATIENT
  Age: 73 Year
  Sex: Female
  Weight: 69 kg

DRUGS (5)
  1. LAPATINIB [Suspect]
     Indication: BREAST CANCER
     Route: 048
     Dates: start: 20100518, end: 20110518
  2. DOCETAXEL [Suspect]
     Indication: BREAST CANCER
     Dosage: 75MGM2 Every 3 weeks
     Route: 042
     Dates: start: 20100517, end: 20100720
  3. TRASTUZUMAB [Concomitant]
     Indication: BREAST CANCER
     Route: 042
     Dates: start: 20120106
  4. LETROZOLE [Concomitant]
     Indication: BREAST CANCER
     Dosage: 2.5MG Four times per day
     Route: 048
     Dates: start: 20100921
  5. BELOC ZOK MITE [Concomitant]
     Indication: HYPERTENSION
     Dosage: 47.5MG Twice per day
     Route: 048
     Dates: start: 20120318

REACTIONS (1)
  - Hypertension [Recovered/Resolved]
